FAERS Safety Report 10970399 (Version 4)
Quarter: 2015Q3

REPORT INFORMATION
  Report Type: Report from Study
  Country: US (occurrence: None)
  Receive Date: 20150327
  Receipt Date: 20150929
  Transmission Date: 20151125
  Serious: Yes (Other)
  Sender: FDA-Public Use
  Company Number: 2015AP007468

PATIENT
  Age: 55 Year
  Sex: Female
  Weight: 72 kg

DRUGS (11)
  1. COMPAZINE /00013302/ (PROCHLORPERAZINE EDISYLATE) [Concomitant]
  2. ARANESP [Concomitant]
     Active Substance: DARBEPOETIN ALFA
  3. ZOVIRAX /00587301/ (ACICLOVIR) [Concomitant]
  4. DICYCLOMINE /00068601/ (DICYCLOVERINE) [Concomitant]
  5. FERRIPROX [Suspect]
     Active Substance: DEFERIPRONE
     Indication: IRON OVERLOAD
     Route: 048
     Dates: start: 20150228, end: 20150324
  6. LIALDA (MESALAZINE) [Concomitant]
  7. VIDAZA [Suspect]
     Active Substance: AZACITIDINE
     Indication: PRODUCT USED FOR UNKNOWN INDICATION
     Dates: start: 20150323, end: 20150724
  8. DESFERAL (DEFEROXAMINE MESILATE) [Concomitant]
  9. FERRIPROX [Suspect]
     Active Substance: DEFERIPRONE
     Indication: MYELODYSPLASTIC SYNDROME
     Route: 048
     Dates: start: 20150228, end: 20150324
  10. ZYRTEC [Concomitant]
     Active Substance: CETIRIZINE HYDROCHLORIDE
  11. LEVAQUIN [Concomitant]
     Active Substance: LEVOFLOXACIN

REACTIONS (3)
  - Vomiting [None]
  - Diarrhoea [None]
  - Agranulocytosis [None]

NARRATIVE: CASE EVENT DATE: 20150313
